FAERS Safety Report 4719998-7 (Version None)
Quarter: 2005Q3

REPORT INFORMATION
  Report Type: 
  Country: None (occurrence: None)
  Receive Date: 20050721
  Receipt Date: 20040311
  Transmission Date: 20060218
  Serious: No
  Sender: FDA-Public Use
  Company Number: US-GLAXOSMITHKLINE-A0502363A

PATIENT
  Age: 61 Year
  Sex: Female

DRUGS (2)
  1. IMITREX [Suspect]
     Indication: MIGRAINE
     Dosage: 50MG AS REQUIRED
     Route: 048
  2. PREDNISONE [Suspect]
     Dosage: 40MG PER DAY
     Route: 048
     Dates: start: 20040310

REACTIONS (1)
  - FLUSHING [None]
